FAERS Safety Report 16168393 (Version 1)
Quarter: 2019Q2

REPORT INFORMATION
  Report Type: Other
  Country: GB (occurrence: GB)
  Receive Date: 20190408
  Receipt Date: 20190408
  Transmission Date: 20190711
  Serious: Yes (Hospitalization, Other)
  Sender: FDA-Public Use
  Company Number: GB-APOTEX-2019AP010887

PATIENT
  Age: 80 Year
  Sex: Male

DRUGS (2)
  1. LATANAPROST 0.005% W/V EYE DROPS, SOLUTION [Suspect]
     Active Substance: LATANOPROST
     Indication: PRODUCT USED FOR UNKNOWN INDICATION
     Dosage: 1 GTT, QD (IN EACH EYE.)
     Route: 047
  2. TIMOLOL MALEATE. [Suspect]
     Active Substance: TIMOLOL MALEATE
     Indication: GLAUCOMA
     Dosage: 1 GTT, Q.12H
     Route: 047
     Dates: start: 20180116, end: 20180210

REACTIONS (6)
  - Dizziness [Unknown]
  - Meniere^s disease [Unknown]
  - Vestibular neuronitis [Not Recovered/Not Resolved]
  - Tinnitus [Unknown]
  - Malaise [Unknown]
  - Palpitations [Unknown]

NARRATIVE: CASE EVENT DATE: 20180121
